FAERS Safety Report 17502153 (Version 6)
Quarter: 2021Q4

REPORT INFORMATION
  Report Type: Spontaneous
  Country: US (occurrence: US)
  Receive Date: 20200305
  Receipt Date: 20211129
  Transmission Date: 20220304
  Serious: Yes (Hospitalization)
  Sender: FDA-Public Use
  Company Number: US-VERTEX PHARMACEUTICALS-2020-004063

PATIENT
  Sex: Male

DRUGS (8)
  1. TRIKAFTA [Suspect]
     Active Substance: ELEXACAFTOR\IVACAFTOR\TEZACAFTOR
     Indication: Cystic fibrosis
     Dosage: 2 TABS (100 MG/ 50 MG/ 75 MG) IN AM AND 1 TAB (150 MG) IN PM
     Route: 048
     Dates: start: 20200108, end: 2020
  2. TRIKAFTA [Suspect]
     Active Substance: ELEXACAFTOR\IVACAFTOR\TEZACAFTOR
     Dosage: BLUE TABLET IN AM AND ORANGE TABLET AT NIGHT
     Route: 048
     Dates: start: 20200113, end: 202106
  3. TRIKAFTA [Suspect]
     Active Substance: ELEXACAFTOR\IVACAFTOR\TEZACAFTOR
     Dosage: HALF DOSE
     Route: 048
     Dates: start: 20210819
  4. ALBUTEROL [Concomitant]
     Active Substance: ALBUTEROL
  5. ZENPEP [Concomitant]
     Active Substance: PANCRELIPASE AMYLASE\PANCRELIPASE LIPASE\PANCRELIPASE PROTEASE
  6. VITAMIN C [Concomitant]
     Active Substance: ASCORBIC ACID
  7. CHOLECALCIFEROL [Concomitant]
     Active Substance: CHOLECALCIFEROL
  8. GARLIC [Concomitant]
     Active Substance: GARLIC

REACTIONS (12)
  - Increased appetite [Recovered/Resolved]
  - Arthralgia [Recovered/Resolved]
  - Feeling abnormal [Unknown]
  - Pruritus [Not Recovered/Not Resolved]
  - Urticaria [Recovered/Resolved]
  - Rash [Recovered/Resolved]
  - Influenza [Unknown]
  - Vision blurred [Not Recovered/Not Resolved]
  - Insomnia [Unknown]
  - Anxiety [Not Recovered/Not Resolved]
  - Night sweats [Unknown]
  - Leukonychia [Unknown]

NARRATIVE: CASE EVENT DATE: 20200101
